FAERS Safety Report 19867336 (Version 2)
Quarter: 2021Q4

REPORT INFORMATION
  Report Type: Spontaneous
  Country: ER (occurrence: ER)
  Receive Date: 20210922
  Receipt Date: 20211001
  Transmission Date: 20220303
  Serious: Yes (Life-Threatening, Hospitalization, Other)
  Sender: FDA-Public Use
  Company Number: ER-GRANULES-ER-2021GRALIT00484

PATIENT
  Age: 37 Year
  Sex: Female

DRUGS (1)
  1. RANITIDINE [Suspect]
     Active Substance: RANITIDINE
     Indication: Peptic ulcer
     Dosage: 50 MG DILUTED IN 10 ML
     Route: 042

REACTIONS (2)
  - Cardiac arrest [Recovered/Resolved]
  - Medication error [Unknown]
